FAERS Safety Report 25752074 (Version 1)
Quarter: 2025Q3

REPORT INFORMATION
  Report Type: Spontaneous
  Country: US (occurrence: None)
  Receive Date: 20250902
  Receipt Date: 20250902
  Transmission Date: 20251021
  Serious: Yes (Hospitalization)
  Sender: FDA-CTU
  Company Number: None

PATIENT
  Age: 67 Year
  Sex: Female

DRUGS (9)
  1. BIKTARVY [Suspect]
     Active Substance: BICTEGRAVIR SODIUM\EMTRICITABINE\TENOFOVIR ALAFENAMIDE FUMARATE
     Indication: HIV infection
     Route: 048
     Dates: start: 20220101
  2. lis/hctz [Concomitant]
  3. rosuvasattin [Concomitant]
  4. JARDIANCE [Concomitant]
     Active Substance: EMPAGLIFLOZIN
  5. PREGABALIN [Concomitant]
     Active Substance: PREGABALIN
  6. NOVOLIN 70/30 [Concomitant]
     Active Substance: INSULIN HUMAN
  7. FISH OIL [Concomitant]
     Active Substance: FISH OIL
  8. TYLENOL [Concomitant]
     Active Substance: ACETAMINOPHEN
  9. VITAMIN D NOS [Concomitant]
     Active Substance: CHOLECALCIFEROL\ERGOCALCIFEROL

REACTIONS (2)
  - Urinary tract infection [None]
  - Constipation [None]

NARRATIVE: CASE EVENT DATE: 20250801
